FAERS Safety Report 9333348 (Version 2)
Quarter: 2014Q2

REPORT INFORMATION
  Report Type: Spontaneous
  Country: US (occurrence: US)
  Receive Date: 20130606
  Receipt Date: 20140414
  Transmission Date: 20141212
  Serious: Yes (Congenital Anomaly, Other)
  Sender: FDA-Public Use
  Company Number: US-PFIZER INC-2011235596

PATIENT
  Sex: Female

DRUGS (5)
  1. ZOLOFT [Suspect]
     Dosage: UNK
     Route: 064
     Dates: start: 199406, end: 199507
  2. ZOLOFT [Suspect]
     Dosage: UNK
     Route: 064
     Dates: start: 1995, end: 1996
  3. ALLEGRA [Concomitant]
     Dosage: UNK
     Route: 064
  4. PRENATAL VITAMINS [Concomitant]
     Dosage: UNK
     Route: 064
  5. TYLENOL [Concomitant]
     Dosage: UNK
     Route: 064

REACTIONS (10)
  - Maternal exposure during pregnancy [Unknown]
  - Spina bifida [Unknown]
  - Meningomyelocele [Unknown]
  - Neurogenic bladder [Unknown]
  - Hydrocephalus [Unknown]
  - Convulsion [Unknown]
  - Vesicoureteric reflux [Unknown]
  - Urinary incontinence [Unknown]
  - Faecal incontinence [Unknown]
  - Congenital anomaly [Unknown]
